FAERS Safety Report 23371663 (Version 1)
Quarter: 2024Q1

REPORT INFORMATION
  Report Type: Spontaneous
  Country: CA (occurrence: CA)
  Receive Date: 20240105
  Receipt Date: 20240105
  Transmission Date: 20240410
  Serious: Yes (Other)
  Sender: FDA-Public Use
  Company Number: CA-FreseniusKabi-FK202400120

PATIENT
  Age: 55 Year
  Sex: Female

DRUGS (1)
  1. ZOLEDRONIC ACID [Suspect]
     Active Substance: ZOLEDRONIC ACID
     Indication: Product used for unknown indication

REACTIONS (3)
  - Face injury [Recovered/Resolved with Sequelae]
  - Fall [Recovered/Resolved with Sequelae]
  - Syncope [Recovered/Resolved with Sequelae]
